FAERS Safety Report 8879634 (Version 1)
Quarter: 2012Q4

REPORT INFORMATION
  Report Type: 
  Country: JP (occurrence: JP)
  Receive Date: 20121101
  Receipt Date: 20121101
  Transmission Date: 20130627
  Serious: Yes (Other)
  Sender: FDA-Public Use
  Company Number: JP-ASTELLAS-2012JP010151

PATIENT
  Age: 78 Year
  Sex: Male

DRUGS (18)
  1. PROGRAF [Suspect]
     Indication: STILL^S DISEASE ADULT ONSET
     Dosage: UNK
     Route: 065
     Dates: start: 2011
  2. PROGRAF [Suspect]
     Dosage: 1.5 mg, Unknown/D
     Route: 065
  3. PROGRAF [Suspect]
     Dosage: 2 mg, Unknown/D
     Route: 065
     Dates: end: 2012
  4. PREDNISOLONE [Concomitant]
     Indication: STILL^S DISEASE ADULT ONSET
     Dosage: 30 mg, Unknown/D
     Route: 065
     Dates: start: 2009
  5. PREDNISOLONE [Concomitant]
     Dosage: UNK
     Route: 065
  6. PREDNISOLONE [Concomitant]
     Dosage: 5 mg, Unknown/D
     Route: 065
     Dates: start: 201103, end: 2011
  7. PREDNISOLONE [Concomitant]
     Dosage: 15 mg, Unknown/D
     Route: 065
     Dates: start: 201106, end: 2011
  8. PREDNISOLONE [Concomitant]
     Dosage: 10 mg, Unknown/D
     Route: 065
     Dates: start: 2011, end: 2011
  9. PREDNISOLONE [Concomitant]
     Dosage: 40 mg, Unknown/D
     Route: 065
     Dates: start: 2011, end: 2011
  10. PREDNISOLONE [Concomitant]
     Dosage: 15 mg, Unknown/D
     Route: 065
     Dates: start: 2011, end: 201203
  11. PREDNISOLONE [Concomitant]
     Dosage: 12.5 mg, Unknown/D
     Route: 065
     Dates: start: 2012, end: 201204
  12. PREDNISOLONE [Concomitant]
     Dosage: 10 mg, Unknown/D
     Route: 065
     Dates: start: 201204
  13. METHOTREXATE [Concomitant]
     Indication: STILL^S DISEASE ADULT ONSET
     Dosage: 10 mg, Weekly
     Route: 065
  14. METHOTREXATE [Concomitant]
     Dosage: 12 mg, Weekly
     Route: 065
     Dates: end: 201204
  15. PIOGLITAZONE HYDROCHLORIDE [Concomitant]
     Indication: DIABETES MELLITUS
     Dosage: 15 mg, Unknown/D
     Route: 065
     Dates: start: 2011
  16. METFORMIN HYDROCHLORIDE [Concomitant]
     Indication: DIABETES MELLITUS
     Dosage: 500 mg, Unknown/D
     Route: 065
     Dates: start: 2011
  17. CYCLOSPORINE [Concomitant]
     Indication: STILL^S DISEASE ADULT ONSET
     Dosage: UNK
     Route: 065
     Dates: start: 2011
  18. TOCILIZUMAB [Concomitant]
     Dosage: 8 mg/kg, Monthly
     Route: 065

REACTIONS (2)
  - Drug ineffective for unapproved indication [Unknown]
  - Still^s disease adult onset [Unknown]
